FAERS Safety Report 14951434 (Version 1)
Quarter: 2018Q2

REPORT INFORMATION
  Report Type: Spontaneous
  Country: ZA (occurrence: ZA)
  Receive Date: 20180530
  Receipt Date: 20180530
  Transmission Date: 20180711
  Serious: Yes (Death)
  Sender: FDA-Public Use
  Company Number: ZA-PFIZER INC-2018219445

PATIENT
  Age: 79 Year
  Sex: Female

DRUGS (3)
  1. ASPAVOR [Suspect]
     Active Substance: ATORVASTATIN
     Dosage: 20 MG, UNK
  2. ECOTRIN [Suspect]
     Active Substance: ASPIRIN
     Dosage: 81 MG, UNK
  3. AVAMYS [Suspect]
     Active Substance: FLUTICASONE FUROATE
     Dosage: 27 UG, UNK

REACTIONS (1)
  - Death [Fatal]

NARRATIVE: CASE EVENT DATE: 20180512
